FAERS Safety Report 12101257 (Version 1)
Quarter: 2016Q1

REPORT INFORMATION
  Report Type: Report from Study
  Country: FR (occurrence: FR)
  Receive Date: 20160222
  Receipt Date: 20160222
  Transmission Date: 20160526
  Serious: Yes (Hospitalization, Other)
  Sender: FDA-Public Use
  Company Number: FR-ELI_LILLY_AND_COMPANY-FR201602006021

PATIENT
  Sex: Male

DRUGS (1)
  1. GEMZAR [Suspect]
     Active Substance: GEMCITABINE HYDROCHLORIDE
     Indication: NON-SMALL CELL LUNG CANCER METASTATIC
     Dosage: UNK
     Route: 065
     Dates: start: 20110222, end: 20110719

REACTIONS (18)
  - Mucosal inflammation [Unknown]
  - Mucosal inflammation [Unknown]
  - Nausea [Unknown]
  - Nausea [Unknown]
  - Nausea [Unknown]
  - Stomatitis [Unknown]
  - Mucosal inflammation [Unknown]
  - Stomatitis [Unknown]
  - Off label use [Unknown]
  - Nausea [Unknown]
  - Mucosal inflammation [Unknown]
  - Malignant neoplasm progression [Unknown]
  - Nausea [Unknown]
  - Stomatitis [Unknown]
  - Nausea [Unknown]
  - Vomiting [Unknown]
  - Vomiting [Unknown]
  - Mucosal inflammation [Unknown]

NARRATIVE: CASE EVENT DATE: 20110315
